FAERS Safety Report 23861205 (Version 1)
Quarter: 2024Q2

REPORT INFORMATION
  Report Type: Spontaneous
  Country: US (occurrence: US)
  Receive Date: 20240516
  Receipt Date: 20240516
  Transmission Date: 20240716
  Serious: No
  Sender: FDA-Public Use
  Company Number: US-UNITED THERAPEUTICS-UNT-2024-014316

PATIENT
  Age: 65 Year
  Sex: Female

DRUGS (5)
  1. TYVASO [Suspect]
     Active Substance: TREPROSTINIL
     Indication: Product used for unknown indication
     Dosage: 18 ?G, QID
     Dates: start: 202404
  2. AMBRISENTAN [Concomitant]
     Active Substance: AMBRISENTAN
     Indication: Pulmonary arterial hypertension
     Dosage: 5 MG, QD
     Route: 065
     Dates: start: 202103
  3. ADEMPAS [Concomitant]
     Active Substance: RIOCIGUAT
     Indication: Pulmonary arterial hypertension
     Dosage: 2.5 MG, TID
     Route: 065
     Dates: start: 202203
  4. UPTRAVI [Concomitant]
     Active Substance: SELEXIPAG
     Indication: Pulmonary arterial hypertension
     Dosage: 200 MG, QD
     Route: 065
     Dates: start: 202401, end: 202401
  5. UPTRAVI [Concomitant]
     Active Substance: SELEXIPAG
     Dosage: 200 ?G, BID
     Route: 065
     Dates: start: 20240131

REACTIONS (11)
  - Bendopnoea [Unknown]
  - Headache [Recovering/Resolving]
  - Nausea [Recovering/Resolving]
  - Pain in extremity [Recovering/Resolving]
  - Myalgia [Recovering/Resolving]
  - Insomnia [Recovering/Resolving]
  - Illness [Recovering/Resolving]
  - Oxygen consumption increased [Recovering/Resolving]
  - Dyspnoea exertional [Unknown]
  - Fatigue [Unknown]
  - Cough [Recovering/Resolving]
